FAERS Safety Report 8320848-0 (Version None)
Quarter: 2012Q2

REPORT INFORMATION
  Report Type: 
  Country: None (occurrence: None)
  Receive Date: 20120430
  Receipt Date: 20120420
  Transmission Date: 20120825
  Serious: Yes (Hospitalization)
  Sender: FDA-Public Use
  Company Number: PHHY2012FR034581

PATIENT
  Sex: Male

DRUGS (4)
  1. FENOFIBRATE [Concomitant]
     Indication: HYPERCHOLESTEROLAEMIA
     Dosage: 200 MG, QD
  2. EZETIMIBE [Concomitant]
     Indication: HYPERCHOLESTEROLAEMIA
     Dosage: 10 MG, QD
  3. ESOMEPRAZOLE MAGNESIUM [Concomitant]
     Dosage: 40 MG, QD
  4. VALSARTAN [Suspect]
     Indication: HYPERTENSION
     Dosage: 160 MG, QD
     Route: 048
     Dates: start: 20120202, end: 20120229

REACTIONS (7)
  - SKIN PLAQUE [None]
  - INFECTION [None]
  - ERYTHEMA [None]
  - DERMATITIS ALLERGIC [None]
  - ECZEMA [None]
  - PSORIASIS [None]
  - PRURIGO [None]
